FAERS Safety Report 18021810 (Version 2)
Quarter: 2020Q3

REPORT INFORMATION
  Report Type: Report from Study
  Country: MX (occurrence: MX)
  Receive Date: 20200715
  Receipt Date: 20200724
  Transmission Date: 20201103
  Serious: Yes (Death)
  Sender: FDA-Public Use
  Company Number: MX-UCBSA-2020027152

PATIENT
  Sex: Male
  Weight: 82 kg

DRUGS (7)
  1. KEPPRA [Suspect]
     Active Substance: LEVETIRACETAM
     Indication: EPILEPSY
     Dosage: UNK
     Dates: start: 201801, end: 20190327
  2. SALICYLIC ACID. [Concomitant]
     Active Substance: SALICYLIC ACID
     Indication: DIABETES MELLITUS
     Dosage: UNK
  3. BRIVARACETAM [Suspect]
     Active Substance: BRIVARACETAM
     Indication: PRODUCT USED FOR UNKNOWN INDICATION
     Dosage: UNK
  4. ASPIRINE PROTECT [Concomitant]
     Active Substance: ASPIRIN
     Indication: CARDIOVASCULAR EVENT PROPHYLAXIS
     Dosage: 100 MILLIGRAM, ONCE DAILY (QD)
     Route: 048
     Dates: end: 20190327
  5. CLOPIDOGREL [Concomitant]
     Active Substance: CLOPIDOGREL BISULFATE
     Indication: HYPERTENSION
  6. SALICYLIC ACID. [Concomitant]
     Active Substance: SALICYLIC ACID
     Indication: HYPERTENSION
  7. CLOPIDOGREL [Concomitant]
     Active Substance: CLOPIDOGREL BISULFATE
     Indication: DIABETES MELLITUS
     Dosage: UNK

REACTIONS (1)
  - Prostate cancer [Fatal]
